FAERS Safety Report 5692996-5 (Version None)
Quarter: 2008Q2

REPORT INFORMATION
  Report Type: 
  Country: None (occurrence: None)
  Receive Date: 20080401
  Receipt Date: 20080401
  Transmission Date: 20081010
  Serious: Yes (Other)
  Sender: FDA-Public Use
  Company Number: None

PATIENT

DRUGS (1)
  1. SINGULAIR [Suspect]
     Indication: MULTIPLE ALLERGIES
     Dosage: CHILD DOSE - 1 PILL 1 TIME PER DAY PO
     Route: 048

REACTIONS (6)
  - ABNORMAL BEHAVIOUR [None]
  - DISTURBANCE IN ATTENTION [None]
  - INSOMNIA [None]
  - MOOD ALTERED [None]
  - NIGHTMARE [None]
  - PSYCHOMOTOR HYPERACTIVITY [None]
